FAERS Safety Report 5274374-6 (Version None)
Quarter: 2007Q1

REPORT INFORMATION
  Report Type: 
  Country: None (occurrence: None)
  Receive Date: 20070323
  Receipt Date: 20070315
  Transmission Date: 20070707
  Serious: Yes (Other)
  Sender: FDA-Public Use
  Company Number: US-PFIZER INC-2006148655

PATIENT
  Sex: Female
  Weight: 74.4 kg

DRUGS (9)
  1. CHANTIX [Suspect]
     Indication: SMOKING CESSATION THERAPY
     Route: 048
     Dates: start: 20061019, end: 20061101
  2. VALSARTAN [Concomitant]
  3. OCEAN [Concomitant]
     Route: 045
  4. VERELAN [Concomitant]
  5. TOPAMAX [Concomitant]
  6. ESTRADIOL [Concomitant]
  7. TRAMADOL HCL [Concomitant]
  8. SEROQUEL [Concomitant]
  9. XALATAN [Concomitant]

REACTIONS (3)
  - ALOPECIA [None]
  - NAUSEA [None]
  - SKIN BURNING SENSATION [None]
